FAERS Safety Report 14604359 (Version 1)
Quarter: 2018Q1

REPORT INFORMATION
  Report Type: Spontaneous
  Country: US (occurrence: US)
  Receive Date: 20180306
  Receipt Date: 20180306
  Transmission Date: 20180509
  Serious: No
  Sender: FDA-Public Use
  Company Number: US-BAYER-2018-043620

PATIENT
  Sex: Female

DRUGS (8)
  1. METOPROLOL. [Concomitant]
     Active Substance: METOPROLOL
     Dosage: 25 MG, UNK
  2. PRIMIDONE. [Concomitant]
     Active Substance: PRIMIDONE
     Dosage: 50 MG, UNK
  3. VITAMIN E [Concomitant]
     Active Substance: .ALPHA.-TOCOPHEROL
  4. DOXYCYCLINE. [Concomitant]
     Active Substance: DOXYCYCLINE
  5. ALEVE [Concomitant]
     Active Substance: NAPROXEN SODIUM
  6. LYRICA [Concomitant]
     Active Substance: PREGABALIN
     Dosage: 100 MG, UNK
  7. BETASERON [Suspect]
     Active Substance: INTERFERON BETA-1B
     Indication: MULTIPLE SCLEROSIS
     Dosage: 0.25 MG, QOD
     Route: 058
     Dates: start: 201701
  8. BIOTIN [Concomitant]
     Active Substance: BIOTIN
     Dosage: 10000 ?G, UNK

REACTIONS (1)
  - Alopecia [Not Recovered/Not Resolved]
